FAERS Safety Report 7491688-X (Version None)
Quarter: 2011Q2

REPORT INFORMATION
  Report Type: 
  Country: None (occurrence: None)
  Receive Date: 20110519
  Receipt Date: 20110504
  Transmission Date: 20111010
  Serious: No
  Sender: FDA-Public Use
  Company Number: US-ASTRAZENECA-2011SE27274

PATIENT
  Age: 44 Year
  Sex: Female

DRUGS (2)
  1. CLONAZEPAM [Concomitant]
  2. SEROQUEL XR [Suspect]
     Route: 048

REACTIONS (6)
  - PAIN IN EXTREMITY [None]
  - ROAD TRAFFIC ACCIDENT [None]
  - PNEUMONIA PRIMARY ATYPICAL [None]
  - FULL BLOOD COUNT DECREASED [None]
  - FACIAL PAIN [None]
  - ARTHRALGIA [None]
